FAERS Safety Report 18854394 (Version 2)
Quarter: 2021Q2

REPORT INFORMATION
  Report Type: Spontaneous
  Country: FR (occurrence: FR)
  Receive Date: 20210205
  Receipt Date: 20210526
  Transmission Date: 20210717
  Serious: Yes (Death, Hospitalization, Other)
  Sender: FDA-Public Use
  Company Number: FR-MYLANLABS-2021M1006983

PATIENT
  Age: 37 Year
  Sex: Male

DRUGS (16)
  1. SPORANOX [Suspect]
     Active Substance: ITRACONAZOLE
     Indication: MENINGITIS CRYPTOCOCCAL
     Dosage: 600 MILLIGRAM, QD (600 MG, DAILY)
     Route: 048
     Dates: start: 19950405, end: 19951108
  2. FLUCONAZOLE. [Suspect]
     Active Substance: FLUCONAZOLE
     Indication: MENINGITIS CRYPTOCOCCAL
     Dosage: 400 MILLIGRAM, QD (400 MG, DAILY)
     Route: 048
     Dates: start: 199503, end: 199506
  3. PYRIMETHAMINE [Concomitant]
     Active Substance: PYRIMETHAMINE
     Dosage: 50 MILLIGRAM, QD (50 MG, DAILY)
     Dates: start: 19950210
  4. SULFAMETHOXAZOLE W/TRIMETHOPRIM [Concomitant]
     Active Substance: SULFAMETHOXAZOLE\TRIMETHOPRIM
     Dosage: UNK
     Route: 048
     Dates: start: 1994, end: 19960109
  5. PIRACETAM [Concomitant]
     Active Substance: PIRACETAM
     Dosage: UNK
     Route: 048
     Dates: start: 199508
  6. SULFADIAZINE. [Concomitant]
     Active Substance: SULFADIAZINE
     Dosage: 3 GRAM, QD (3 G, DAILY)
     Dates: start: 19950210
  7. SULFADIAZINE. [Concomitant]
     Active Substance: SULFADIAZINE
     Dosage: 6 GRAM, QD (6 G, DAILY)
     Dates: start: 19950311, end: 19950326
  8. CLONAZEPAM. [Concomitant]
     Active Substance: CLONAZEPAM
     Dosage: UNK
     Route: 048
     Dates: start: 19950405, end: 19951030
  9. FLUCONAZOLE. [Suspect]
     Active Substance: FLUCONAZOLE
     Dosage: 400 MILLIGRAM, QD (400 MG, DAILY)
     Route: 048
     Dates: start: 199508
  10. CARBAMAZEPINE. [Concomitant]
     Active Substance: CARBAMAZEPINE
     Dosage: UNK
     Route: 048
     Dates: start: 199503
  11. PREDNISONE. [Concomitant]
     Active Substance: PREDNISONE
     Dosage: UNK
     Route: 048
     Dates: start: 19950405
  12. FLUCONAZOLE. [Suspect]
     Active Substance: FLUCONAZOLE
     Dosage: 800 MG, DAILY FOR FOUR WEEKS
     Route: 042
     Dates: start: 19941031
  13. FLUCYTOSINE. [Concomitant]
     Active Substance: FLUCYTOSINE
     Dosage: 150 MILLIGRAM/KILOGRAM, QD (50 MG/KG, EVERY 8 HOURS)
     Dates: start: 199503
  14. PYRIMETHAMINE [Concomitant]
     Active Substance: PYRIMETHAMINE
     Dosage: 100 MILLIGRAM, QD (100 MG, DAILY)
     Dates: start: 19950311, end: 19950326
  15. AMPHOTERICIN B. [Concomitant]
     Active Substance: AMPHOTERICIN B
     Dosage: 1 MILLIGRAM/KILOGRAM, QD (1 MG/KG, DAILY)
     Route: 042
     Dates: start: 199503
  16. MISOPROSTOL. [Concomitant]
     Active Substance: MISOPROSTOL
     Dosage: UNK
     Route: 048
     Dates: start: 199506

REACTIONS (8)
  - Cryptococcosis [Unknown]
  - Liver function test abnormal [Unknown]
  - Off label use [Unknown]
  - Drug resistance [Unknown]
  - Medication error [Unknown]
  - Overdose [Unknown]
  - Incorrect dose administered [Unknown]
  - Lung disorder [Fatal]

NARRATIVE: CASE EVENT DATE: 1995
